FAERS Safety Report 19903708 (Version 1)
Quarter: 2021Q4

REPORT INFORMATION
  Report Type: Spontaneous
  Country: US (occurrence: US)
  Receive Date: 20211001
  Receipt Date: 20211001
  Transmission Date: 20220303
  Serious: No
  Sender: FDA-Public Use
  Company Number: US-WES PHARMA INC-2119037

PATIENT

DRUGS (1)
  1. HYDROCODONE BITARTRATE AND ACETAMINOPHEN [Suspect]
     Active Substance: ACETAMINOPHEN\HYDROCODONE BITARTRATE
     Indication: Pain
     Route: 065

REACTIONS (4)
  - Therapeutic product effect decreased [Unknown]
  - Frustration tolerance decreased [Unknown]
  - Suspected product quality issue [Unknown]
  - Product substitution issue [Unknown]
